FAERS Safety Report 6678629-X (Version None)
Quarter: 2010Q2

REPORT INFORMATION
  Report Type: 
  Country: None (occurrence: None)
  Receive Date: 20100413
  Receipt Date: 20100402
  Transmission Date: 20101027
  Serious: Yes (Other)
  Sender: FDA-Public Use
  Company Number: US-JNJFOC-20100302527

PATIENT
  Sex: Female
  Weight: 86.18 kg

DRUGS (8)
  1. REMICADE [Suspect]
     Indication: RHEUMATOID ARTHRITIS
     Route: 042
  2. REMICADE [Suspect]
     Route: 042
  3. ARAVA [Concomitant]
  4. PLAQUENIL [Concomitant]
  5. PREDNISOLONE [Concomitant]
  6. METOPROLOL TARTRATE [Concomitant]
  7. LASIX [Concomitant]
  8. POTASSIUM [Concomitant]

REACTIONS (4)
  - ASTHENIA [None]
  - GAIT DISTURBANCE [None]
  - INFECTION [None]
  - KNEE ARTHROPLASTY [None]
